FAERS Safety Report 18787626 (Version 1)
Quarter: 2021Q1

REPORT INFORMATION
  Report Type: Spontaneous
  Country: US (occurrence: US)
  Receive Date: 20210125
  Receipt Date: 20210125
  Transmission Date: 20210419
  Serious: No
  Sender: FDA-Public Use
  Company Number: US-ROCHE-2680686

PATIENT
  Age: 36 Year
  Sex: Female
  Weight: 66.74 kg

DRUGS (1)
  1. RITUXAN [Suspect]
     Active Substance: RITUXIMAB
     Indication: PROGRESSIVE RELAPSING MULTIPLE SCLEROSIS
     Route: 041
     Dates: start: 202001

REACTIONS (6)
  - Vomiting [Unknown]
  - Off label use [Unknown]
  - Malaise [Unknown]
  - Alopecia [Unknown]
  - Hypersomnia [Unknown]
  - Intentional product use issue [Unknown]

NARRATIVE: CASE EVENT DATE: 20200215
